FAERS Safety Report 6512107-3 (Version None)
Quarter: 2009Q4

REPORT INFORMATION
  Report Type: 
  Country: None (occurrence: None)
  Receive Date: 20091222
  Receipt Date: 20090602
  Transmission Date: 20100525
  Serious: No
  Sender: FDA-Public Use
  Company Number: US-ASTRAZENECA-2009UW14125

PATIENT
  Age: 22985 Day
  Sex: Female
  Weight: 112 kg

DRUGS (6)
  1. CRESTOR [Suspect]
     Route: 048
     Dates: start: 20090519, end: 20090602
  2. THEOPHYLLINE [Concomitant]
  3. OXYGEN [Concomitant]
  4. ESTROGEN [Concomitant]
  5. GLIPIZIDE [Concomitant]
  6. CALCIUM WITH VITAMIN D [Concomitant]

REACTIONS (2)
  - NAUSEA [None]
  - VOMITING [None]
